FAERS Safety Report 5358194-X (Version None)
Quarter: 2007Q2

REPORT INFORMATION
  Report Type: 
  Country: None (occurrence: None)
  Receive Date: 20070530
  Receipt Date: 20061027
  Transmission Date: 20071010
  Serious: Yes (Hospitalization)
  Sender: FDA-Public Use
  Company Number: US200605001589

PATIENT
  Age: 23 Year
  Weight: 83.9 kg

DRUGS (2)
  1. ZYPREXA [Suspect]
     Dosage: SEE IMAGE
     Dates: end: 20010201
  2. ZYPREXA [Suspect]
     Dosage: SEE IMAGE
     Dates: start: 19980801

REACTIONS (3)
  - DIABETES MELLITUS [None]
  - METABOLIC DISORDER [None]
  - PANCREATITIS [None]
